FAERS Safety Report 26131565 (Version 1)
Quarter: 2025Q4

REPORT INFORMATION
  Report Type: Spontaneous
  Country: US (occurrence: None)
  Receive Date: 20251208
  Receipt Date: 20251208
  Transmission Date: 20260118
  Serious: Yes (Hospitalization)
  Sender: FDA-CTU
  Company Number: None

PATIENT
  Age: 75 Year
  Sex: Female

DRUGS (2)
  1. HAEGARDA [Suspect]
     Active Substance: HUMAN C1-ESTERASE INHIBITOR
     Indication: Complement deficiency disease
     Dosage: HAEGARDA - 2000 UNITS; ??TAKE TWICE WEEKLY
  2. FIRAZYR [Suspect]
     Active Substance: ICATIBANT ACETATE
     Dosage: FIRAZYR - 3ML ?AS NEEDED FOR ATTACKS

REACTIONS (2)
  - Injection site reaction [None]
  - Cerebral haemorrhage [None]
